FAERS Safety Report 6755491-8 (Version None)
Quarter: 2010Q2

REPORT INFORMATION
  Report Type: 
  Country: None (occurrence: None)
  Receive Date: 20100604
  Receipt Date: 20100525
  Transmission Date: 20101027
  Serious: Yes (Hospitalization)
  Sender: FDA-Public Use
  Company Number: JP-JNJFOC-20091007742

PATIENT
  Sex: Female
  Weight: 71 kg

DRUGS (15)
  1. DOXORUBICIN HCL [Suspect]
     Indication: OVARIAN CANCER RECURRENT
     Dosage: CYCLE 1
     Route: 042
  2. DOXORUBICIN HCL [Suspect]
     Dosage: CYCLE 3
     Route: 042
  3. DOXORUBICIN HCL [Suspect]
     Dosage: CYCLE 2
     Route: 042
  4. PREDNISOLONE [Concomitant]
     Route: 048
  5. SULFAMETHOXAZOLE AND TRIMETHOPRIM [Concomitant]
     Route: 048
  6. ONEALFA [Concomitant]
     Route: 048
  7. GASTER D [Concomitant]
     Route: 048
  8. MAGMITT [Concomitant]
     Route: 048
  9. LENDORMIN [Concomitant]
     Indication: PROPHYLAXIS
     Route: 048
  10. NEUROVITAN [Concomitant]
     Indication: PROPHYLAXIS
     Route: 048
  11. PARIET [Concomitant]
     Route: 048
  12. ZYPREXA [Concomitant]
     Route: 048
  13. ALLEGRA [Concomitant]
     Route: 048
  14. DEPAS [Concomitant]
     Indication: PROPHYLAXIS
     Route: 048
  15. RIKKUNSHI-TO [Concomitant]
     Route: 048

REACTIONS (2)
  - EPIDERMOLYSIS [None]
  - PALMAR-PLANTAR ERYTHRODYSAESTHESIA SYNDROME [None]
